FAERS Safety Report 7973112-3 (Version None)
Quarter: 2011Q4

REPORT INFORMATION
  Report Type: 
  Country: None (occurrence: None)
  Receive Date: 20111213
  Receipt Date: 20111206
  Transmission Date: 20120403
  Serious: Yes (Life-Threatening)
  Sender: FDA-Public Use
  Company Number: JP-ASTELLAS-2011JP008974

PATIENT
  Age: 79 Year
  Sex: Male

DRUGS (18)
  1. AMARYL [Concomitant]
     Dosage: 1 MG, UNKNOWN/D
     Route: 048
  2. AMIODARONE HCL [Concomitant]
     Dosage: UNK
     Route: 065
  3. LACTULOSE [Concomitant]
     Dosage: 30 ML, UNKNOWN/D
     Route: 065
  4. FUROSEMIDE [Concomitant]
     Dosage: 40 MG, UNKNOWN/D
     Route: 048
  5. CLEANAL [Concomitant]
     Dosage: UNK
     Route: 065
  6. PLAVIX [Concomitant]
     Dosage: 75 MG, UNKNOWN/D
     Route: 048
  7. ASPIRIN [Concomitant]
     Dosage: UNK
     Route: 065
  8. ASPENON [Concomitant]
     Dosage: UNK
     Route: 065
     Dates: start: 20111202
  9. FUNGUARD [Suspect]
     Indication: BRONCHOPULMONARY ASPERGILLOSIS
     Dosage: 150 MG, UNKNOWN/D
     Route: 041
     Dates: start: 20111203
  10. PAZUCROSS [Suspect]
     Dosage: 1000 MG, UNKNOWN/D
     Route: 042
     Dates: start: 20111203, end: 20111204
  11. CARVEDILOL [Concomitant]
     Dosage: UNK
     Route: 065
  12. TORSEMIDE [Concomitant]
     Dosage: 4 MG, UNKNOWN/D
     Route: 065
  13. DAIKENTYUTO [Concomitant]
     Dosage: UNK
     Route: 065
  14. SPIRIVA [Concomitant]
     Dosage: 18 UG, UNKNOWN/D
     Route: 055
  15. FLUVOXAMINE MALEATE [Suspect]
     Dosage: 25 MG, UNKNOWN/D
     Route: 048
     Dates: start: 20111203, end: 20111204
  16. CANDESARTAN CILEXETIL [Concomitant]
     Dosage: 4 MG, UNKNOWN/D
     Route: 048
  17. SIGMART [Concomitant]
     Dosage: UNK
     Route: 065
  18. ITRACONAZOLE [Concomitant]
     Dosage: 100 MG, UNKNOWN/D
     Route: 048

REACTIONS (1)
  - TORSADE DE POINTES [None]
